FAERS Safety Report 5278751-9 (Version None)
Quarter: 2007Q1

REPORT INFORMATION
  Report Type: 
  Country: None (occurrence: None)
  Receive Date: 20070328
  Receipt Date: 20070316
  Transmission Date: 20070707
  Serious: Yes (Death)
  Sender: FDA-Public Use
  Company Number: JP-SANOFI-SYNTHELABO-A01200703079

PATIENT
  Age: 70 Year
  Sex: Male

DRUGS (3)
  1. ZYVOX [Concomitant]
     Indication: DRUG USE FOR UNKNOWN INDICATION
     Route: 041
     Dates: start: 20070219, end: 20070301
  2. MILRILA [Suspect]
     Indication: DRUG USE FOR UNKNOWN INDICATION
     Route: 042
     Dates: start: 20070301, end: 20070302
  3. CARBENIN [Concomitant]
     Indication: DRUG USE FOR UNKNOWN INDICATION
     Route: 041
     Dates: start: 20070301, end: 20070302

REACTIONS (1)
  - PULMONARY EMBOLISM [None]
